FAERS Safety Report 18299578 (Version 1)
Quarter: 2020Q3

REPORT INFORMATION
  Report Type: Spontaneous
  Country: US (occurrence: US)
  Receive Date: 20200922
  Receipt Date: 20200922
  Transmission Date: 20201103
  Serious: Yes (Death)
  Sender: FDA-Public Use
  Company Number: None

PATIENT
  Age: 61 Year
  Sex: Male
  Weight: 121.8 kg

DRUGS (17)
  1. DEXAMETHASONE 6 MG IV ONCE DAILY [Concomitant]
     Dates: start: 20200807, end: 20200815
  2. ENOXAPARIN 40 MG SQ Q 24HR [Concomitant]
     Dates: start: 20200806, end: 20200808
  3. ASCORBIC ACID 1000 MG PO ONCE DAILY [Concomitant]
     Dates: start: 20200821, end: 20200911
  4. CONVALESCENT PLASMA [Concomitant]
     Active Substance: HUMAN PLASMA
     Dates: start: 20200807, end: 20200807
  5. ASCORBIC ACID 1000 MG PO ONCE DAILY [Concomitant]
     Dates: start: 20200806, end: 20200810
  6. CEFEPIME RENALLY DOSES [Concomitant]
     Dates: start: 20200810, end: 20200826
  7. METHYPREDNISOLONE 40 MG IV [Concomitant]
     Dates: start: 20200831, end: 20200911
  8. REMDESIVIR. [Suspect]
     Active Substance: REMDESIVIR
     Indication: COVID-19 PNEUMONIA
     Route: 042
     Dates: start: 20200810, end: 20200914
  9. AMLODIPINE 10 MG PO ONCE DAILY [Concomitant]
     Dates: start: 20200806, end: 20200820
  10. INSULIN GLARGINE [Concomitant]
     Active Substance: INSULIN GLARGINE
     Dates: start: 20200807, end: 20200911
  11. ZINC SULFATE 220 MG PO ONCE DAILY [Concomitant]
     Dates: start: 20200806, end: 20200810
  12. ENOXAPARIN 120 MG SQ Q12HRS [Concomitant]
     Dates: start: 20200808, end: 20200828
  13. FAMOTIDINE 20 MG IV/PO RENALLY DOSED [Concomitant]
     Dates: start: 20200817, end: 20200911
  14. COLCHICINE 0.3 MG PO ONCE DAILY [Concomitant]
     Dates: start: 20200820, end: 20200823
  15. DOXYCYCLINE PO QQ12HR [Concomitant]
     Dates: start: 20200817, end: 20200906
  16. LISINOPRIL 20 MG PO ONCE DAILY [Concomitant]
     Dates: start: 20200806, end: 20200817
  17. MEROPENEM 1 GM IV Q12HR [Concomitant]
     Dates: start: 20200826, end: 20200911

REACTIONS (7)
  - Acute kidney injury [None]
  - Transaminases increased [None]
  - Palliative care [None]
  - Multiple organ dysfunction syndrome [None]
  - Haemodialysis [None]
  - Septic shock [None]
  - SARS-CoV-2 test positive [None]

NARRATIVE: CASE EVENT DATE: 20200911
